FAERS Safety Report 18446400 (Version 1)
Quarter: 2020Q4

REPORT INFORMATION
  Report Type: Spontaneous
  Country: US (occurrence: US)
  Receive Date: 20201030
  Receipt Date: 20201030
  Transmission Date: 20210114
  Serious: Yes (Hospitalization)
  Sender: FDA-Public Use
  Company Number: US-UNICHEM PHARMACEUTICALS (USA) INC-UCM202010-001281

PATIENT
  Age: 69 Year
  Sex: Female

DRUGS (1)
  1. AMIODARONE HYDROCHLORIDE. [Suspect]
     Active Substance: AMIODARONE HYDROCHLORIDE
     Indication: ATRIAL FIBRILLATION
     Dosage: UNKNOWN

REACTIONS (10)
  - Palpitations [Recovering/Resolving]
  - Muscular weakness [Recovering/Resolving]
  - Diarrhoea [Recovering/Resolving]
  - Dysphagia [Recovering/Resolving]
  - Asthenia [Recovering/Resolving]
  - Hyperthyroidism [Recovering/Resolving]
  - Myasthenia gravis [Unknown]
  - Tremor [Recovering/Resolving]
  - Atrial fibrillation [Unknown]
  - Dyspnoea [Unknown]
